FAERS Safety Report 15598942 (Version 2)
Quarter: 2018Q4

REPORT INFORMATION
  Report Type: Spontaneous
  Country: JP (occurrence: JP)
  Receive Date: 20181108
  Receipt Date: 20181227
  Transmission Date: 20190205
  Serious: Yes (Death, Hospitalization, Other)
  Sender: FDA-Public Use
  Company Number: JP-PFIZER INC-2018390811

PATIENT
  Age: 67 Year
  Sex: Female

DRUGS (2)
  1. XALKORI [Suspect]
     Active Substance: CRIZOTINIB
     Dosage: 200 MG, 2X/DAY
     Dates: start: 20180929, end: 20181019
  2. XALKORI [Suspect]
     Active Substance: CRIZOTINIB
     Indication: LUNG NEOPLASM MALIGNANT
     Dosage: 250 MG, 2X/DAY
     Route: 048
     Dates: start: 20180907, end: 20180912

REACTIONS (4)
  - Malaise [Not Recovered/Not Resolved]
  - Cachexia [Unknown]
  - Neoplasm progression [Fatal]
  - Oedema [Recovering/Resolving]

NARRATIVE: CASE EVENT DATE: 201809
